FAERS Safety Report 8426886-1 (Version None)
Quarter: 2012Q2

REPORT INFORMATION
  Report Type: 
  Country: None (occurrence: None)
  Receive Date: 20120323
  Receipt Date: 20110928
  Transmission Date: 20120825
  Serious: Yes (Hospitalization)
  Sender: FDA-Public Use
  Company Number: 163-21880-11043566

PATIENT
  Age: 63 Year
  Sex: Male
  Weight: 79.1 kg

DRUGS (12)
  1. REVLIMID [Suspect]
     Indication: CHRONIC LYMPHOCYTIC LEUKAEMIA
     Dosage: 15 MG, 1 IN 1 D, PO;
     Route: 048
     Dates: start: 20110401
  2. REVLIMID [Suspect]
     Indication: CHRONIC LYMPHOCYTIC LEUKAEMIA
     Dosage: 15 MG, 1 IN 1 D, PO;
     Route: 048
     Dates: start: 20110201
  3. REVLIMID [Suspect]
     Indication: CHRONIC LYMPHOCYTIC LEUKAEMIA
     Dosage: 15 MG, 1 IN 1 D, PO;
     Route: 048
     Dates: start: 20110413, end: 20110421
  4. REVLIMID [Suspect]
     Indication: CHRONIC LYMPHOCYTIC LEUKAEMIA
     Dosage: 10 MG, 1 IN 1 D, PO
     Route: 048
     Dates: start: 20110401
  5. ADVAIR HFA [Concomitant]
  6. ASTEPRO (AZELASTINE HYDROCHLORIDE) [Concomitant]
  7. MULTI-VITAMINS [Concomitant]
  8. REVLIMID [Suspect]
     Indication: CHRONIC LYMPHOCYTIC LEUKAEMIA
     Dosage: 15MG, 1 IN 1 D, PO
     Route: 048
     Dates: start: 20110201
  9. LEXAPRO [Concomitant]
  10. ZOLPIDEM [Concomitant]
  11. ZYRTEC [Concomitant]
  12. LISINOPRIL [Concomitant]

REACTIONS (3)
  - DIARRHOEA [None]
  - NEUTROPENIA [None]
  - BLOOD COUNT ABNORMAL [None]
